FAERS Safety Report 21791517 (Version 1)
Quarter: 2022Q4

REPORT INFORMATION
  Report Type: Other
  Country: GB (occurrence: GB)
  Receive Date: 20221228
  Receipt Date: 20221228
  Transmission Date: 20230112
  Serious: Yes (Life-Threatening, Other)
  Sender: FDA-Public Use
  Company Number: None

PATIENT
  Age: 73 Year
  Sex: Female
  Weight: 57 kg

DRUGS (9)
  1. PREDNISOLONE [Interacting]
     Active Substance: PREDNISOLONE
     Indication: Product used for unknown indication
     Dosage: 5 MILLIGRAM, PER DAY, TABLET
     Route: 065
     Dates: start: 20220630
  2. POTASSIUM BICARBONATE\SODIUM ALGINATE [Interacting]
     Active Substance: POTASSIUM BICARBONATE\SODIUM ALGINATE
     Indication: Product used for unknown indication
     Dosage: 40 MILLILITER, PER DAY, FOR 6-8 WEEKS (PEPPERMINT)
     Route: 048
     Dates: start: 20220711
  3. BALNEUM PLUS [LAUROMACROGOL 400;UREA] [Concomitant]
     Indication: Product used for unknown indication
     Dosage: UNK, APPLY SEVERAL TIMES A DAY
     Route: 065
     Dates: start: 20220721
  4. CALCIUM CARBONATE\CHOLECALCIFEROL [Concomitant]
     Active Substance: CALCIUM CARBONATE\CHOLECALCIFEROL
     Indication: Product used for unknown indication
     Dosage: 2 DOSAGE FORM, PER DAY
     Route: 065
     Dates: start: 20220622
  5. FLUCLOXACILLIN [Concomitant]
     Active Substance: FLUCLOXACILLIN
     Indication: Product used for unknown indication
     Dosage: 2000 MILLIGRAM, PER DAY
     Route: 065
     Dates: start: 20220721
  6. HYDROCORTISONE [Concomitant]
     Active Substance: HYDROCORTISONE
     Indication: Product used for unknown indication
     Dosage: UNK, (2 PER DAY) 7-10 DAYS
     Route: 065
     Dates: start: 20220615
  7. POLYETHYLENE GLYCOL 3350\POTASSIUM CHLORIDE\SODIUM BICARBONATE\SODIUM [Concomitant]
     Active Substance: POLYETHYLENE GLYCOL 3350\POTASSIUM CHLORIDE\SODIUM BICARBONATE\SODIUM CHLORIDE
     Indication: Product used for unknown indication
     Dosage: UNK, ORANGE SACHETS SUGAR FREE (GALEN LTD), AS NECESSARY
     Route: 048
     Dates: start: 20220722
  8. MENTHOL [Concomitant]
     Active Substance: MENTHOL
     Indication: Product used for unknown indication
     Dosage: UNK, (WHEN REQUIRED) PRN
     Route: 065
     Dates: start: 20220725
  9. OMEPRAZOLE [Concomitant]
     Active Substance: OMEPRAZOLE
     Indication: Product used for unknown indication
     Dosage: 40 MILLIGRAM, FOR 6-8 WEEKS, PER DAY (GASTRO-RESISTANT GRANULES FOR ORAL SUSPENSION)
     Route: 048
     Dates: start: 20220624

REACTIONS (2)
  - Adrenocortical insufficiency acute [Recovered/Resolved]
  - Drug interaction [Unknown]

NARRATIVE: CASE EVENT DATE: 20220817
